FAERS Safety Report 8507051-6 (Version None)
Quarter: 2012Q3

REPORT INFORMATION
  Report Type: 
  Country: None (occurrence: None)
  Receive Date: 20120712
  Receipt Date: 20120628
  Transmission Date: 20120928
  Serious: Yes (Death, Hospitalization)
  Sender: FDA-Public Use
  Company Number: FI-GILEAD-2012-0054726

PATIENT
  Sex: Female

DRUGS (15)
  1. INSULIN [Concomitant]
     Indication: TYPE 2 DIABETES MELLITUS
  2. EMTRICITABINE [Concomitant]
     Indication: HIV INFECTION
     Dosage: UNK
     Dates: start: 20050109
  3. AZT [Concomitant]
     Indication: HIV INFECTION
     Dosage: UNK
     Dates: start: 20040901, end: 20041222
  4. AZITHROMYCIN [Concomitant]
     Indication: MYCOBACTERIUM AVIUM COMPLEX INFECTION
  5. VIREAD [Suspect]
     Indication: HIV INFECTION
     Dosage: UNK
     Dates: start: 20020101, end: 20041222
  6. KALETRA [Concomitant]
     Indication: HIV INFECTION
     Dosage: UNK
     Dates: start: 20050109
  7. FLUCONAZOLE [Concomitant]
     Indication: CANDIDIASIS
  8. FUZEON [Concomitant]
     Indication: HIV INFECTION
     Dosage: UNK
     Dates: start: 20050109
  9. KALETRA [Concomitant]
     Dosage: UNK
     Dates: start: 20040802, end: 20040901
  10. ETAMBUTOL                          /00022301/ [Concomitant]
     Indication: MYCOBACTERIUM AVIUM COMPLEX INFECTION
  11. ZERIT [Concomitant]
     Indication: HIV INFECTION
     Dosage: UNK
     Dates: start: 20040802, end: 20040901
  12. EFAVIRENZ [Concomitant]
     Indication: HIV INFECTION
     Dosage: UNK
     Dates: start: 20040802, end: 20040901
  13. RIFABUTIN [Concomitant]
     Indication: MYCOBACTERIUM AVIUM COMPLEX INFECTION
  14. EMTRICITABINE [Concomitant]
     Dosage: UNK
     Dates: start: 20040901, end: 20041222
  15. FUZEON [Concomitant]
     Dosage: UNK
     Dates: start: 20040901, end: 20041222

REACTIONS (2)
  - TUBERCULOSIS [None]
  - RENAL TUBULAR ACIDOSIS [None]
